FAERS Safety Report 9227969 (Version 2)
Quarter: 2013Q2

REPORT INFORMATION
  Report Type: Spontaneous
  Country: US (occurrence: US)
  Receive Date: 20130412
  Receipt Date: 20130607
  Transmission Date: 20140414
  Serious: Yes (Other)
  Sender: FDA-Public Use
  Company Number: US-PURDUE-USA-2013-0100894

PATIENT
  Age: 40 Year
  Sex: Female

DRUGS (1)
  1. OXYCONTIN (NDA 22-272) [Suspect]
     Indication: PAIN
     Dosage: 80 MG, BID
     Route: 048
     Dates: start: 201301

REACTIONS (4)
  - Systemic lupus erythematosus [Not Recovered/Not Resolved]
  - Nasopharyngitis [Unknown]
  - Pyrexia [Not Recovered/Not Resolved]
  - Malaise [Unknown]
